FAERS Safety Report 7517601-4 (Version None)
Quarter: 2011Q2

REPORT INFORMATION
  Report Type: 
  Country: None (occurrence: None)
  Receive Date: 20110601
  Receipt Date: 20110519
  Transmission Date: 20111010
  Serious: Yes (Hospitalization)
  Sender: FDA-Public Use
  Company Number: US-ELI_LILLY_AND_COMPANY-US201104006408

PATIENT
  Sex: Female

DRUGS (5)
  1. FORTEO [Suspect]
     Dosage: 20 UG, QD
     Route: 065
     Dates: end: 20110516
  2. FORTEO [Suspect]
     Dosage: 20 UG, QD
     Route: 065
     Dates: start: 20110519
  3. ANALGESICS [Concomitant]
  4. MORPHINE [Concomitant]
     Indication: PROCEDURAL PAIN
  5. FORTEO [Suspect]
     Indication: OSTEOPOROSIS
     Dosage: 20 UG, QD
     Route: 065
     Dates: start: 20110315

REACTIONS (7)
  - DEHYDRATION [None]
  - ABDOMINAL PAIN [None]
  - SOMNOLENCE [None]
  - MALAISE [None]
  - CYSTITIS [None]
  - ASTHENIA [None]
  - CONFUSIONAL STATE [None]
